FAERS Safety Report 5429126-0 (Version None)
Quarter: 2007Q3

REPORT INFORMATION
  Report Type: 
  Country: None (occurrence: None)
  Receive Date: 20070829
  Receipt Date: 20070823
  Transmission Date: 20080115
  Serious: Yes (Disabling)
  Sender: FDA-Public Use
  Company Number: JP-ALLERGAN-0703215US

PATIENT
  Sex: Male

DRUGS (2)
  1. BOTOX [Suspect]
     Indication: BLEPHAROSPASM
     Dosage: 12.5 UNITS, UNK
     Route: 030
     Dates: start: 20060807, end: 20060807
  2. HYALEIN [Concomitant]
     Indication: KERATOCONJUNCTIVITIS SICCA
     Dates: start: 20070810

REACTIONS (3)
  - DIPLOPIA [None]
  - EYELID PTOSIS [None]
  - FACIAL PALSY [None]
